FAERS Safety Report 6357033-8 (Version None)
Quarter: 2009Q3

REPORT INFORMATION
  Report Type: 
  Country: None (occurrence: None)
  Receive Date: 20090915
  Receipt Date: 20090226
  Transmission Date: 20100115
  Serious: No
  Sender: FDA-Public Use
  Company Number: US-ABBOTT-09P-163-0560072-00

PATIENT
  Age: 25 Year
  Sex: Female

DRUGS (4)
  1. DEPAKOTE [Suspect]
     Indication: CONVULSION
     Route: 048
  2. DEPAKOTE ER [Suspect]
     Indication: CONVULSION
  3. SYNTHROID [Concomitant]
     Indication: DRUG USE FOR UNKNOWN INDICATION
     Dosage: UNKNOWN
  4. TOPAMAX [Concomitant]
     Indication: DRUG USE FOR UNKNOWN INDICATION
     Dosage: UNKNOWN

REACTIONS (1)
  - BLOOD THYROID STIMULATING HORMONE DECREASED [None]
